FAERS Safety Report 19035987 (Version 1)
Quarter: 2021Q1

REPORT INFORMATION
  Report Type: Spontaneous
  Country: US (occurrence: US)
  Receive Date: 20210319
  Receipt Date: 20210319
  Transmission Date: 20210420
  Serious: Yes (Death)
  Sender: FDA-Public Use
  Company Number: None

PATIENT
  Age: 67 Year
  Sex: Female
  Weight: 57.7 kg

DRUGS (1)
  1. ASPIRIN. [Suspect]
     Active Substance: ASPIRIN
     Dates: end: 20181015

REACTIONS (5)
  - Metastases to bone [None]
  - Disease progression [None]
  - Hepatic cancer metastatic [None]
  - Breast cancer [None]
  - Brain cancer metastatic [None]

NARRATIVE: CASE EVENT DATE: 20200813
